FAERS Safety Report 14968947 (Version 2)
Quarter: 2018Q2

REPORT INFORMATION
  Report Type: Report from Study
  Country: None (occurrence: US)
  Receive Date: 20180604
  Receipt Date: 20180629
  Transmission Date: 20180711
  Serious: Yes (Other)
  Sender: FDA-Public Use
  Company Number: US-ABBVIE-18P-163-2370337-00

PATIENT
  Sex: Female
  Weight: 56.75 kg

DRUGS (3)
  1. DEPAKOTE [Suspect]
     Active Substance: DIVALPROEX SODIUM
     Indication: SEIZURE
     Dosage: FIVE PILLS A DAY; THREE PILLS IN THE MORNING AND TWO AT NIGHT.
     Route: 048
     Dates: start: 1993, end: 2003
  2. DEPAKOTE ER [Suspect]
     Active Substance: DIVALPROEX SODIUM
     Indication: SEIZURE
     Route: 048
     Dates: start: 2003
  3. ATENOLOL. [Concomitant]
     Active Substance: ATENOLOL
     Indication: HYPERTENSION

REACTIONS (10)
  - Energy increased [Not Recovered/Not Resolved]
  - Asthenia [Recovered/Resolved]
  - Ankle fracture [Recovered/Resolved]
  - Drug ineffective [Unknown]
  - Deafness [Not Recovered/Not Resolved]
  - Fall [Recovered/Resolved]
  - Weight decreased [Not Recovered/Not Resolved]
  - Weight increased [Unknown]
  - Lethargy [Unknown]
  - Hypoacusis [Not Recovered/Not Resolved]

NARRATIVE: CASE EVENT DATE: 2003
